FAERS Safety Report 7462958-6 (Version None)
Quarter: 2011Q2

REPORT INFORMATION
  Report Type: 
  Country: None (occurrence: None)
  Receive Date: 20110506
  Receipt Date: 20110427
  Transmission Date: 20111010
  Serious: Yes (Other)
  Sender: FDA-Public Use
  Company Number: PHHY2011FR35665

PATIENT
  Sex: Female

DRUGS (5)
  1. ZYPREXA [Suspect]
     Indication: DEPRESSION
     Dosage: 1 DF, QD
     Dates: start: 20080401, end: 20101012
  2. CYMBALTA [Suspect]
     Indication: DEPRESSION
     Dosage: 1 DF, QD
     Dates: start: 20090101, end: 20100101
  3. LUDIOMIL [Suspect]
     Indication: DEPRESSION
     Dosage: 3 DF, QD
     Route: 048
     Dates: end: 20080101
  4. TERCIAN [Interacting]
     Indication: DEPRESSION
     Dosage: 2 DF, BID
     Route: 048
     Dates: start: 20080501, end: 20080101
  5. CLOMIPRAMINE HYDROCHLORIDE [Suspect]
     Indication: DEPRESSION
     Dosage: 1 DF, QD
     Dates: end: 20080101

REACTIONS (4)
  - BURNING MOUTH SYNDROME [None]
  - WEIGHT DECREASED [None]
  - GINGIVAL PAIN [None]
  - APTYALISM [None]
